FAERS Safety Report 11393909 (Version 1)
Quarter: 2015Q3

REPORT INFORMATION
  Report Type: Spontaneous
  Country: FR (occurrence: FR)
  Receive Date: 20150819
  Receipt Date: 20150819
  Transmission Date: 20151125
  Serious: Yes (Hospitalization)
  Sender: FDA-Public Use
  Company Number: FR-ACCORD-033093

PATIENT
  Age: 54 Year
  Sex: Female

DRUGS (6)
  1. FLUOROURACIL ACCORD [Suspect]
     Active Substance: FLUOROURACIL
     Indication: PRODUCT USED FOR UNKNOWN INDICATION
     Dosage: COURSE 2 DAY 1
     Route: 042
     Dates: start: 20150605
  2. AVASTIN [Concomitant]
     Active Substance: BEVACIZUMAB
     Dates: start: 20150629
  3. CARBOPLATIN. [Suspect]
     Active Substance: CARBOPLATIN
     Indication: PRODUCT USED FOR UNKNOWN INDICATION
     Dosage: COURSE 1, DAY 1
     Dates: start: 20150303
  4. OFLOCET [Concomitant]
     Active Substance: OFLOXACIN
     Indication: PROPHYLAXIS
     Dates: start: 20150603
  5. OXALIPLATIN ACCORD [Suspect]
     Active Substance: OXALIPLATIN
     Indication: PRODUCT USED FOR UNKNOWN INDICATION
     Dosage: COURSE 1, DAY 1
     Route: 042
     Dates: start: 20150303
  6. VFEND [Concomitant]
     Active Substance: VORICONAZOLE
     Indication: PROPHYLAXIS
     Dates: start: 20150603

REACTIONS (2)
  - Hepatocellular injury [Not Recovered/Not Resolved]
  - Cholestasis [Not Recovered/Not Resolved]

NARRATIVE: CASE EVENT DATE: 20150617
